FAERS Safety Report 6449339-9 (Version None)
Quarter: 2009Q4

REPORT INFORMATION
  Report Type: 
  Country: None (occurrence: None)
  Receive Date: 20091120
  Receipt Date: 20091109
  Transmission Date: 20100525
  Serious: Yes (Other)
  Sender: FDA-Public Use
  Company Number: GB-ELI_LILLY_AND_COMPANY-GB200911001904

PATIENT
  Age: 61 Year
  Sex: Male
  Weight: 116 kg

DRUGS (1)
  1. CIALIS [Suspect]
     Dosage: 5 MG, DAILY (1/D)

REACTIONS (1)
  - ATRIAL FIBRILLATION [None]
